FAERS Safety Report 8829630 (Version 1)
Quarter: 2012Q4

REPORT INFORMATION
  Report Type: 
  Country: US (occurrence: US)
  Receive Date: 20121008
  Receipt Date: 20121008
  Transmission Date: 20130627
  Serious: No
  Sender: FDA-Public Use
  Company Number: US-TEVA-300420USA

PATIENT

DRUGS (1)
  1. QVAR [Suspect]
     Dosage: 2 puffs BID of 40 mcg or 80 mcg

REACTIONS (3)
  - Abnormal behaviour [Unknown]
  - Anger [Unknown]
  - Aggression [Unknown]
